FAERS Safety Report 5016712-5 (Version None)
Quarter: 2006Q2

REPORT INFORMATION
  Report Type: 
  Country: None (occurrence: None)
  Receive Date: 20060602
  Receipt Date: 20050118
  Transmission Date: 20061013
  Serious: No
  Sender: FDA-Public Use
  Company Number: US-GLAXOSMITHKLINE-A0541109A

PATIENT
  Age: 5 Year
  Sex: Female

DRUGS (2)
  1. AUGMENTIN ES-600 [Suspect]
     Indication: OTITIS MEDIA
     Dosage: 7.5CC TWICE PER DAY
     Route: 048
     Dates: start: 20050113
  2. TYLENOL (GELTAB) [Concomitant]

REACTIONS (1)
  - PSYCHOMOTOR HYPERACTIVITY [None]
